FAERS Safety Report 9017605 (Version 5)
Quarter: 2013Q2

REPORT INFORMATION
  Report Type: Spontaneous
  Country: US (occurrence: US)
  Receive Date: 20130117
  Receipt Date: 20130501
  Transmission Date: 20140414
  Serious: Yes (Death, Hospitalization)
  Sender: FDA-Public Use
  Company Number: US-B.I. PHARMACEUTICALS,INC./RIDGEFIELD-2013-BI-00726BP

PATIENT
  Age: 92 Year
  Sex: Female
  Weight: 63.4 kg

DRUGS (8)
  1. PRADAXA [Suspect]
     Indication: CEREBROVASCULAR ACCIDENT PROPHYLAXIS
     Dosage: 300 MG
     Route: 048
     Dates: start: 20110425, end: 20120106
  2. PRADAXA [Suspect]
     Indication: ATRIAL FIBRILLATION
  3. PROZAC [Concomitant]
     Route: 048
     Dates: start: 2003, end: 2012
  4. BENAZEPRIL [Concomitant]
     Route: 048
     Dates: start: 2003, end: 2012
  5. ACTONE/ALENDRONATE [Concomitant]
     Dates: start: 2006, end: 2012
  6. METOPROLOL [Concomitant]
     Dosage: 25 MG
     Route: 048
     Dates: start: 2010, end: 2012
  7. SEROQUEL [Concomitant]
     Dosage: 12.5 MG
     Route: 048
  8. HYDROCODONE APAP [Concomitant]
     Route: 048

REACTIONS (6)
  - Shock [Fatal]
  - Cardiac arrest [Fatal]
  - Gastrointestinal haemorrhage [Fatal]
  - Epistaxis [Unknown]
  - Rectal haemorrhage [Unknown]
  - Anaemia [Unknown]
